FAERS Safety Report 17399573 (Version 6)
Quarter: 2020Q3

REPORT INFORMATION
  Report Type: Report from Study
  Country: BE (occurrence: BE)
  Receive Date: 20200211
  Receipt Date: 20200320
  Transmission Date: 20201105
  Serious: Yes (Life-Threatening, Hospitalization, Other)
  Sender: FDA-Public Use
  Company Number: BE-ROCHE-2510359

PATIENT
  Age: 31 Year
  Sex: Female
  Weight: 78 kg

DRUGS (9)
  1. BEVACIZUMAB. [Suspect]
     Active Substance: BEVACIZUMAB
     Indication: CERVIX CANCER METASTATIC
     Dosage: MOST RECENT DOSE ON 24/DEC/2019
     Route: 041
     Dates: start: 20190912, end: 20200116
  2. TERRAMYCIN [OXYTETRACYCLINE] [Concomitant]
     Route: 065
     Dates: start: 20200106, end: 20200115
  3. LITICAN [ALIZAPRIDE HYDROCHLORIDE] [Concomitant]
     Route: 065
     Dates: start: 20191014
  4. TISOTUMAB VEDOTIN. [Suspect]
     Active Substance: TISOTUMAB VEDOTIN
     Indication: CERVIX CANCER METASTATIC
     Dosage: MOST RECENT DOSE ON 24/DEC/2019
     Route: 041
     Dates: start: 20190912, end: 20200116
  5. VITAPANTOL [Concomitant]
     Route: 065
     Dates: start: 20190919
  6. IMODIUM [Concomitant]
     Active Substance: LOPERAMIDE HYDROCHLORIDE
     Route: 065
     Dates: start: 20191014
  7. OCUGEL [CARBOMER] [Concomitant]
     Route: 065
     Dates: start: 20190910
  8. DAFALGAN [Concomitant]
     Active Substance: ACETAMINOPHEN
     Route: 065
     Dates: start: 2018
  9. CLEXANE [Concomitant]
     Active Substance: ENOXAPARIN SODIUM
     Route: 065
     Dates: start: 20200117

REACTIONS (4)
  - Tumour inflammation [Not Recovered/Not Resolved]
  - Disease progression [Not Recovered/Not Resolved]
  - Dry eye [Recovered/Resolved]
  - Large intestine infection [Recovered/Resolved]

NARRATIVE: CASE EVENT DATE: 20191205
